FAERS Safety Report 20855639 (Version 3)
Quarter: 2022Q4

REPORT INFORMATION
  Report Type: Report from Study
  Country: IL (occurrence: IL)
  Receive Date: 20220520
  Receipt Date: 20221004
  Transmission Date: 20230112
  Serious: Yes (Death)
  Sender: FDA-Public Use
  Company Number: IL-ABBVIE-22K-082-4403241-00

PATIENT
  Age: 82 Year
  Sex: Female
  Weight: 49 kg

DRUGS (18)
  1. VENETOCLAX [Suspect]
     Active Substance: VENETOCLAX
     Indication: Chronic lymphocytic leukaemia
     Dosage: 10 MG, DOSE INCREASE ACCORDING TO VENETOCLAX DOSE TITRATION SCHEME
     Route: 048
     Dates: start: 20210214, end: 20210214
  2. VENETOCLAX [Suspect]
     Active Substance: VENETOCLAX
     Indication: Chronic lymphocytic leukaemia
     Dosage: 100 MG, DOSE INCREASE ACCORDING TO VENETOCLAX DOSE TITRATION SCHEME
     Dates: start: 20210228
  3. VENETOCLAX [Suspect]
     Active Substance: VENETOCLAX
     Indication: Chronic lymphocytic leukaemia
     Dosage: 50 MG, DOSE INCREASE ACCORDING TO VENETOCLAX DOSE TITRATION SCHEME
     Dates: start: 20210221, end: 20210227
  4. VENETOCLAX [Suspect]
     Active Substance: VENETOCLAX
     Indication: Chronic lymphocytic leukaemia
     Dosage: 20MG, DOSE INCREASE ACCORDING TO VENETOCLAX DOSE TITRATION SCHEME
     Dates: start: 20210215, end: 20210220
  5. GLAUTAN [Concomitant]
     Indication: Glaucoma
     Dates: start: 20090816
  6. PFIZER-BIONTECH COVID-19 VACCINE [Concomitant]
     Active Substance: TOZINAMERAN
     Indication: COVID-19 immunisation
     Dosage: TIME INTERVAL: 1 TOTAL: FIRST DOSE?FREQUENCY 1 IN ONCE
     Route: 030
     Dates: start: 20210103, end: 20210103
  7. PFIZER-BIONTECH COVID-19 VACCINE [Concomitant]
     Active Substance: TOZINAMERAN
     Indication: COVID-19 immunisation
     Dosage: TIME INTERVAL: 1 TOTAL: SECOND DOSE?FREQUENCY 1 IN ONCE
     Route: 030
     Dates: start: 20210124, end: 20210124
  8. BISOPROLOL FUMARATE [Concomitant]
     Active Substance: BISOPROLOL FUMARATE
     Indication: Hypertension
     Dates: start: 20150821
  9. CIPROFLOXACIN [Concomitant]
     Active Substance: CIPROFLOXACIN
     Indication: Prophylaxis
     Dates: start: 20100112
  10. CLONAZEPAM-R [Concomitant]
     Indication: Prophylaxis
     Dates: start: 20090330
  11. ELIQUIS [Concomitant]
     Active Substance: APIXABAN
     Indication: Thrombosis prophylaxis
     Dates: start: 20160916
  12. FUROSEMIDE [Concomitant]
     Active Substance: FUROSEMIDE
     Indication: Oedema
     Dates: start: 20120329
  13. MIRTAZAPINE [Concomitant]
     Active Substance: MIRTAZAPINE
     Indication: Prophylaxis
     Dates: start: 20140113
  14. METHIMAZOLE [Concomitant]
     Active Substance: METHIMAZOLE
     Indication: Hyperthyroidism
     Dates: start: 20200108
  15. BECLOMETHASONE [Concomitant]
     Active Substance: BECLOMETHASONE
     Indication: Asthma
     Dates: start: 20090603
  16. REOLIN [Concomitant]
     Indication: Respiratory disorder
     Dates: start: 20081025
  17. NALOXONE HYDROCHLORIDE\OXYCODONE HYDROCHLORIDE [Concomitant]
     Active Substance: NALOXONE HYDROCHLORIDE\OXYCODONE HYDROCHLORIDE
     Indication: Pain
     Dosage: TARGIN
     Dates: start: 20100914
  18. ALLOPURINOL [Concomitant]
     Active Substance: ALLOPURINOL
     Indication: Prophylaxis
     Dates: start: 20210214, end: 202103

REACTIONS (1)
  - Death [Fatal]

NARRATIVE: CASE EVENT DATE: 20220214
